FAERS Safety Report 5725855-X (Version None)
Quarter: 2008Q2

REPORT INFORMATION
  Report Type: 
  Country: None (occurrence: None)
  Receive Date: 20080430
  Receipt Date: 20080422
  Transmission Date: 20081010
  Serious: Yes (Hospitalization)
  Sender: FDA-Public Use
  Company Number: 163-21880-08031424

PATIENT
  Age: 65 Year
  Sex: Male

DRUGS (3)
  1. REVLIMID [Suspect]
     Indication: MULTIPLE MYELOMA
     Dosage: 25 MG, DALY 21/28 DAYS, ORAL; 15MG TWICE WEEKLY, ORAL
     Route: 048
     Dates: start: 20080215, end: 20080221
  2. REVLIMID [Suspect]
     Indication: MULTIPLE MYELOMA
     Dosage: 25 MG, DALY 21/28 DAYS, ORAL; 15MG TWICE WEEKLY, ORAL
     Route: 048
     Dates: start: 20080201
  3. REVLIMID [Suspect]

REACTIONS (2)
  - DIALYSIS [None]
  - RENAL FAILURE [None]
